FAERS Safety Report 17117603 (Version 1)
Quarter: 2019Q4

REPORT INFORMATION
  Report Type: Spontaneous
  Country: US (occurrence: US)
  Receive Date: 20191205
  Receipt Date: 20191205
  Transmission Date: 20200122
  Serious: Yes (Other)
  Sender: FDA-Public Use
  Company Number: US-OTSUKA-2019_037935

PATIENT
  Age: 64 Year
  Sex: Male
  Weight: 104.76 kg

DRUGS (3)
  1. REXULTI [Suspect]
     Active Substance: BREXPIPRAZOLE
     Indication: MOOD SWINGS
  2. REXULTI [Suspect]
     Active Substance: BREXPIPRAZOLE
     Indication: DEPRESSION
  3. REXULTI [Suspect]
     Active Substance: BREXPIPRAZOLE
     Indication: ANXIETY
     Dosage: 1 MG, QD
     Route: 065
     Dates: start: 20190724

REACTIONS (6)
  - Gambling disorder [Recovering/Resolving]
  - Increased appetite [Recovering/Resolving]
  - Lung cancer metastatic [Unknown]
  - Obsessive-compulsive disorder [Unknown]
  - Product use in unapproved indication [Unknown]
  - Fatigue [Unknown]

NARRATIVE: CASE EVENT DATE: 20190724
